FAERS Safety Report 7110195-7 (Version None)
Quarter: 2010Q4

REPORT INFORMATION
  Report Type: 
  Country: None (occurrence: None)
  Receive Date: 20101118
  Receipt Date: 20100316
  Transmission Date: 20110411
  Serious: Yes (Hospitalization)
  Sender: FDA-Public Use
  Company Number: JP-SANOFI-AVENTIS-2010SA012455

PATIENT
  Age: 52 Year
  Sex: Female
  Weight: 51.55 kg

DRUGS (5)
  1. PLAVIX [Suspect]
     Indication: ANTIPLATELET THERAPY
     Route: 048
     Dates: start: 20100225, end: 20100301
  2. HEPARIN [Suspect]
     Indication: THROMBOSIS PROPHYLAXIS
     Route: 041
     Dates: start: 20100125, end: 20100301
  3. 8-HOUR BAYER [Suspect]
     Indication: ANTIPLATELET THERAPY
     Route: 048
     Dates: start: 20100225, end: 20100301
  4. MUCOSTA [Concomitant]
     Route: 065
  5. TAKEPRON [Concomitant]
     Route: 065

REACTIONS (2)
  - ACTIVATED PARTIAL THROMBOPLASTIN TIME PROLONGED [None]
  - CEREBELLAR HAEMORRHAGE [None]
